FAERS Safety Report 23344867 (Version 1)
Quarter: 2023Q4

REPORT INFORMATION
  Report Type: Report from Study
  Country: CA (occurrence: CA)
  Receive Date: 20231228
  Receipt Date: 20231228
  Transmission Date: 20240110
  Serious: Yes (Other)
  Sender: FDA-Public Use
  Company Number: CA-002147023-NVSC2023CA273539

PATIENT

DRUGS (1)
  1. DICLOFENAC [Suspect]
     Active Substance: DICLOFENAC
     Indication: Product used for unknown indication
     Dosage: 50 MG, BID (1 X 50 MG )
     Route: 048
     Dates: start: 20221101, end: 20221201

REACTIONS (4)
  - Peripheral spondyloarthritis [Unknown]
  - Axial spondyloarthritis [Unknown]
  - Gastrointestinal disorder [Unknown]
  - Drug intolerance [Unknown]

NARRATIVE: CASE EVENT DATE: 20231221
